FAERS Safety Report 19647574 (Version 1)
Quarter: 2021Q3

REPORT INFORMATION
  Report Type: Report from Study
  Country: US (occurrence: US)
  Receive Date: 20210802
  Receipt Date: 20210802
  Transmission Date: 20211014
  Serious: Yes (Hospitalization)
  Sender: FDA-Public Use
  Company Number: US-ENDO PHARMACEUTICALS INC-2021-009866

PATIENT
  Age: 9 Decade
  Sex: Female

DRUGS (33)
  1. LEUCOVORIN CALCIUM. [Concomitant]
     Active Substance: LEUCOVORIN CALCIUM
     Indication: PROPHYLAXIS
     Dosage: 5 MG, DAILY
     Route: 048
     Dates: start: 2015, end: 20210320
  2. FERROUS SULFATE. [Concomitant]
     Active Substance: FERROUS SULFATE
     Dosage: 325 MG, DAILY
     Route: 048
     Dates: start: 20200414
  3. ESTROVEN [Concomitant]
     Active Substance: DIETARY SUPPLEMENT
     Indication: SUPPLEMENTATION THERAPY
     Dosage: 1 DF, DAILY
     Route: 048
     Dates: start: 20190723, end: 20210320
  4. RHEUMATREX [Suspect]
     Active Substance: METHOTREXATE SODIUM
     Indication: RHEUMATOID ARTHRITIS
     Dosage: 20 MG, WEEKLY
     Route: 048
     Dates: start: 20170412, end: 20170712
  5. CORAL CALCIUM ULTRA [Concomitant]
     Indication: SUPPLEMENTATION THERAPY
     Dosage: 1 DF, PRN
     Route: 048
     Dates: start: 2009, end: 20210320
  6. GINKGO BILOBA [Concomitant]
     Active Substance: GINKGO
     Indication: SUPPLEMENTATION THERAPY
     Dosage: 120 MG, DAILY
     Route: 048
     Dates: start: 201612, end: 20210320
  7. SUPER OMEGA 3                      /01334101/ [Concomitant]
     Indication: SUPPLEMENTATION THERAPY
     Dosage: 1 DF, DAILY
     Route: 048
     Dates: start: 201612, end: 20210320
  8. FLUTICASONE PROPIONATE. [Concomitant]
     Active Substance: FLUTICASONE PROPIONATE
     Indication: SEASONAL ALLERGY
     Dosage: 50 ?G, PRN
     Route: 045
     Dates: start: 20180307
  9. ALBUTEROL SULFATE. [Concomitant]
     Active Substance: ALBUTEROL SULFATE
     Indication: ASTHMA
     Dosage: 108 ?G, QID
     Dates: start: 20210122
  10. ESOMEPRAZOLE. [Concomitant]
     Active Substance: ESOMEPRAZOLE MAGNESIUM
     Indication: GASTRITIS
     Dosage: 40 MG, DAILY
     Route: 048
     Dates: start: 2012
  11. ECOTRIN [Concomitant]
     Active Substance: ASPIRIN
     Indication: CARDIOVASCULAR EVENT PROPHYLAXIS
     Dosage: 81 MG, DAILY
     Route: 048
     Dates: start: 2009
  12. GAVISCON REGULAR STRENGTH [Concomitant]
     Active Substance: ALUMINUM HYDROXIDE\MAGNESIUM TRISILICATE
     Indication: DYSPEPSIA
     Dosage: 1 DF, PRN
     Route: 048
     Dates: start: 201711, end: 20210320
  13. VITAMIN E                          /00110501/ [Concomitant]
     Active Substance: TOCOPHEROL
     Indication: SUPPLEMENTATION THERAPY
     Dosage: 1 DF, DAILY
     Route: 048
     Dates: start: 201801
  14. FERROUS SULFATE. [Concomitant]
     Active Substance: FERROUS SULFATE
     Indication: ANAEMIA
     Dosage: 1 DF, DAILY
     Route: 048
     Dates: start: 201801
  15. MECLIZINE [Concomitant]
     Active Substance: MECLIZINE HYDROCHLORIDE
     Indication: DIZZINESS
     Dosage: 25 MG, ONE AS REQUIRED
     Route: 048
     Dates: start: 20180830, end: 20210320
  16. VITAMIN A                          /00056001/ [Concomitant]
     Active Substance: RETINOL
     Indication: SUPPLEMENTATION THERAPY
     Dosage: 80000 IU, DAILY
     Route: 048
     Dates: start: 201801, end: 20210320
  17. SIMVASTATIN. [Concomitant]
     Active Substance: SIMVASTATIN
     Indication: BLOOD CHOLESTEROL INCREASED
     Dosage: 20 MG, DAILY
     Route: 065
  18. ETODOLAC. [Concomitant]
     Active Substance: ETODOLAC
     Indication: RHEUMATOID ARTHRITIS
     Dosage: 400 MG, PRN
     Route: 048
     Dates: start: 201508, end: 20210320
  19. METAMUCIL [Concomitant]
     Active Substance: PLANTAGO SEED
     Indication: CONSTIPATION
     Dosage: 1 DF, PRN
     Route: 048
     Dates: start: 20180307, end: 20210320
  20. EUCALYPTUS OIL [Concomitant]
     Active Substance: EUCALYPTUS OIL
     Indication: SUPPLEMENTATION THERAPY
     Dosage: 1 DROP, PRN
     Route: 061
     Dates: start: 20180307
  21. VASCEPA [Concomitant]
     Active Substance: ICOSAPENT ETHYL
     Indication: BLOOD CHOLESTEROL INCREASED
     Dosage: 2 G, DAILY
     Route: 048
     Dates: start: 20190716
  22. ASPIRIN                            /00002701/ [Concomitant]
     Active Substance: ASPIRIN
     Indication: CHEST PAIN
     Dosage: 324 MG, DAILY
     Route: 048
     Dates: start: 20201129
  23. UPADACITINIB [Suspect]
     Active Substance: UPADACITINIB
     Dosage: 15 MG, DAILY
     Route: 048
     Dates: start: 20210403
  24. FOLIC ACID. [Concomitant]
     Active Substance: FOLIC ACID
     Indication: SUPPLEMENTATION THERAPY
     Dosage: 1 MG, DAILY
     Route: 065
  25. GLUCOSAMINE + CHONDROITIN          /01431201/ [Concomitant]
     Indication: SUPPLEMENTATION THERAPY
     Dosage: 2 DF, DAILY
     Route: 048
     Dates: start: 2016
  26. VITAMIN C [Concomitant]
     Active Substance: ASCORBIC ACID
     Indication: SUPPLEMENTATION THERAPY
     Dosage: 500 MG, DAILY
     Route: 048
     Dates: start: 201701, end: 20210320
  27. UPADACITINIB [Suspect]
     Active Substance: UPADACITINIB
     Indication: RHEUMATOID ARTHRITIS
     Dosage: 15 MG, DAILY
     Route: 048
     Dates: start: 20200408, end: 20210320
  28. UPADACITINIB [Suspect]
     Active Substance: UPADACITINIB
     Dosage: 15 MG, DAILY
     Route: 048
     Dates: start: 20210719, end: 20200407
  29. EVENING PRIMROSE OIL [Concomitant]
     Active Substance: EVENING PRIMROSE OIL\HERBALS
     Indication: SUPPLEMENTATION THERAPY
     Dosage: 1 DF, DAILY
     Route: 048
     Dates: start: 2016, end: 20210320
  30. POTASSIUM [Concomitant]
     Active Substance: POTASSIUM
     Indication: CARDIOVASCULAR EVENT PROPHYLAXIS
     Dosage: 99 MG, PRN
     Route: 048
     Dates: start: 20170509, end: 20210320
  31. LEVOTHYROXINE SODIUM. [Concomitant]
     Active Substance: LEVOTHYROXINE SODIUM
     Indication: HYPOTHYROIDISM
     Dosage: 88 ?G, DAILY
     Route: 048
     Dates: start: 2009
  32. LOSARTAN POTASSIUM. [Concomitant]
     Active Substance: LOSARTAN POTASSIUM
     Indication: HYPERTENSION
     Dosage: 25 MG, DAILY
     Route: 048
     Dates: start: 20180314
  33. VITAMIN D3 [Concomitant]
     Active Substance: CHOLECALCIFEROL
     Indication: SUPPLEMENTATION THERAPY
     Dosage: 2000 UNITS, DAILY
     Route: 048
     Dates: start: 20190716, end: 20210320

REACTIONS (2)
  - Coronary artery disease [Unknown]
  - Aortic stenosis [Recovered/Resolved]

NARRATIVE: CASE EVENT DATE: 20210321
